FAERS Safety Report 7226979-0 (Version None)
Quarter: 2011Q1

REPORT INFORMATION
  Report Type: 
  Country: None (occurrence: None)
  Receive Date: 20110114
  Receipt Date: 20110103
  Transmission Date: 20110831
  Serious: Yes (Hospitalization)
  Sender: FDA-Public Use
  Company Number: DE-NAPPMUNDI-DEU-2011-0006843

PATIENT

DRUGS (1)
  1. MORPHINE SULFATE [Suspect]
     Indication: DRUG DEPENDENCE
     Dosage: 400 MG, DAILY
     Route: 048

REACTIONS (4)
  - GASTROINTESTINAL MOTILITY DISORDER [None]
  - PALLOR [None]
  - GENERAL PHYSICAL HEALTH DETERIORATION [None]
  - NAUSEA [None]
